FAERS Safety Report 21224232 (Version 1)
Quarter: 2022Q3

REPORT INFORMATION
  Report Type: Spontaneous
  Country: CN (occurrence: None)
  Receive Date: 20220817
  Receipt Date: 20220817
  Transmission Date: 20221027
  Serious: Yes (Hospitalization)
  Sender: FDA-Public Use
  Company Number: CN-Eisai Medical Research-EC-2022-106778

PATIENT
  Age: 52 Year
  Sex: Male
  Weight: 59.5 kg

DRUGS (2)
  1. LENVIMA [Suspect]
     Active Substance: LENVATINIB
     Indication: Hepatic cancer
     Route: 048
     Dates: start: 20210605, end: 20220730
  2. CAMRELIZUMAB [Concomitant]
     Active Substance: CAMRELIZUMAB
     Indication: Hepatic cancer
     Route: 041
     Dates: start: 20210605, end: 20220730

REACTIONS (1)
  - Myelosuppression [Not Recovered/Not Resolved]

NARRATIVE: CASE EVENT DATE: 20220101
